FAERS Safety Report 4338655-2 (Version None)
Quarter: 2004Q2

REPORT INFORMATION
  Report Type: 
  Country: None (occurrence: None)
  Receive Date: 20040414
  Receipt Date: 20040406
  Transmission Date: 20050107
  Serious: Yes (Other)
  Sender: FDA-Public Use
  Company Number: PHNU2004DE01468

PATIENT
  Age: 11 Year
  Sex: Female

DRUGS (1)
  1. RITALIN [Suspect]
     Route: 048
     Dates: end: 20030101

REACTIONS (3)
  - APLASTIC ANAEMIA [None]
  - BIOPSY BONE MARROW ABNORMAL [None]
  - PANCYTOPENIA [None]
